FAERS Safety Report 4938727-5 (Version None)
Quarter: 2006Q1

REPORT INFORMATION
  Report Type: 
  Country: None (occurrence: None)
  Receive Date: 20060306
  Receipt Date: 20060224
  Transmission Date: 20060701
  Serious: Yes (Other)
  Sender: FDA-Public Use
  Company Number: 2006028633

PATIENT
  Age: 55 Year
  Sex: Female
  Weight: 72.5755 kg

DRUGS (8)
  1. LYRICA [Suspect]
     Indication: NEURALGIA
     Dosage: 50 MG (50 MG, 1 IN 1 D),
     Dates: start: 20060201
  2. LYRICA [Suspect]
     Indication: NEUROPATHY
     Dosage: 50 MG (50 MG, 1 IN 1 D),
     Dates: start: 20060201
  3. NEURONTIN [Suspect]
     Indication: NEURALGIA
  4. NEURONTIN [Suspect]
     Indication: NEUROPATHY
  5. HYDROXYCHLOROQUINE (HYDROXYCHLOROQUINE) [Concomitant]
  6. DURAGESIC-100 [Concomitant]
  7. PREVACID [Concomitant]
  8. NAPROSYN [Concomitant]

REACTIONS (9)
  - APHASIA [None]
  - CONFUSIONAL STATE [None]
  - FEELING ABNORMAL [None]
  - HEADACHE [None]
  - HYPOAESTHESIA [None]
  - LIBIDO DECREASED [None]
  - OEDEMA [None]
  - SEXUAL DYSFUNCTION [None]
  - THINKING ABNORMAL [None]
